FAERS Safety Report 4980233-6 (Version None)
Quarter: 2006Q2

REPORT INFORMATION
  Report Type: 
  Country: None (occurrence: None)
  Receive Date: 20060424
  Receipt Date: 20060411
  Transmission Date: 20061013
  Serious: Yes (Other)
  Sender: FDA-Public Use
  Company Number: PHBS2006FI05394

PATIENT
  Age: 46 Year
  Sex: Female

DRUGS (1)
  1. ZOMETA [Suspect]
     Route: 065
     Dates: start: 20040601, end: 20060201

REACTIONS (2)
  - BONE DISORDER [None]
  - OSTEONECROSIS [None]
